FAERS Safety Report 4407450-8 (Version None)
Quarter: 2004Q3

REPORT INFORMATION
  Report Type: 
  Country: None (occurrence: None)
  Receive Date: 20040721
  Receipt Date: 20040713
  Transmission Date: 20050211
  Serious: Yes (Hospitalization, Other)
  Sender: FDA-Public Use
  Company Number: 2004223356US

PATIENT
  Age: 49 Year
  Sex: Male
  Weight: 79.4 kg

DRUGS (1)
  1. XANAX [Suspect]
     Indication: DEPRESSION
     Dosage: 0.5 MG
     Dates: start: 20010101

REACTIONS (6)
  - DRUG DEPENDENCE [None]
  - DRUG WITHDRAWAL SYNDROME [None]
  - GASTROOESOPHAGEAL REFLUX DISEASE [None]
  - SUICIDAL IDEATION [None]
  - TREMOR [None]
  - WEIGHT DECREASED [None]
